FAERS Safety Report 24245811 (Version 3)
Quarter: 2025Q3

REPORT INFORMATION
  Report Type: Report from Study
  Country: CL (occurrence: CL)
  Receive Date: 20240824
  Receipt Date: 20250710
  Transmission Date: 20251021
  Serious: Yes (Other)
  Sender: NOVARTIS
  Company Number: CL-002147023-NVSC2021CL301219

PATIENT
  Age: 44 Year
  Sex: Male
  Weight: 106 kg

DRUGS (21)
  1. COSENTYX [Suspect]
     Active Substance: SECUKINUMAB
     Indication: Psoriasis
     Dosage: 150 MG, QW
     Route: 058
     Dates: start: 202110
  2. COSENTYX [Suspect]
     Active Substance: SECUKINUMAB
     Indication: Psoriatic arthropathy
     Dosage: 300 MG, QMO
     Route: 058
     Dates: start: 20211001
  3. COSENTYX [Suspect]
     Active Substance: SECUKINUMAB
     Dosage: 300 MG, QMO
     Route: 058
     Dates: start: 202111
  4. COSENTYX [Suspect]
     Active Substance: SECUKINUMAB
     Dosage: 300 MG, QW
     Route: 058
     Dates: start: 20211130
  5. COSENTYX [Suspect]
     Active Substance: SECUKINUMAB
     Dosage: 300 MG, QMO
     Route: 058
     Dates: start: 20211201
  6. COSENTYX [Suspect]
     Active Substance: SECUKINUMAB
     Dosage: 150 MG, QMO
     Route: 058
     Dates: start: 20211201
  7. COSENTYX [Suspect]
     Active Substance: SECUKINUMAB
     Dosage: 300 MG, QMO
     Route: 058
  8. COSENTYX [Suspect]
     Active Substance: SECUKINUMAB
     Dosage: 300 MG, QW
     Route: 058
     Dates: start: 20211202
  9. COSENTYX [Suspect]
     Active Substance: SECUKINUMAB
     Route: 058
     Dates: start: 20211221
  10. COSENTYX [Suspect]
     Active Substance: SECUKINUMAB
     Dosage: 300 MG, QMO
     Route: 058
     Dates: start: 20211224
  11. COSENTYX [Suspect]
     Active Substance: SECUKINUMAB
     Dosage: 300 MG, QMO
     Route: 058
     Dates: start: 20221014
  12. COSENTYX [Suspect]
     Active Substance: SECUKINUMAB
     Route: 058
     Dates: start: 20230104
  13. COSENTYX [Suspect]
     Active Substance: SECUKINUMAB
     Route: 065
     Dates: start: 202301
  14. COSENTYX [Suspect]
     Active Substance: SECUKINUMAB
     Route: 058
     Dates: start: 20230124
  15. COSENTYX [Suspect]
     Active Substance: SECUKINUMAB
     Dosage: 300 MG, QMO
     Route: 058
     Dates: start: 20231020
  16. COSENTYX [Suspect]
     Active Substance: SECUKINUMAB
     Dosage: 300 MG, QMO
     Route: 058
  17. COSENTYX [Suspect]
     Active Substance: SECUKINUMAB
     Dosage: 150 MG, QMO
     Route: 065
     Dates: start: 20240807, end: 20250302
  18. Barboval [Concomitant]
     Indication: Product used for unknown indication
     Route: 065
  19. CIPROFLOXACIN [Concomitant]
     Active Substance: CIPROFLOXACIN
     Indication: Product used for unknown indication
     Route: 065
  20. PREDNISONE [Concomitant]
     Active Substance: PREDNISONE
     Indication: Product used for unknown indication
     Route: 065
  21. Tapsin night [Concomitant]
     Indication: Product used for unknown indication
     Route: 065

REACTIONS (26)
  - Pneumonia [Unknown]
  - Throat clearing [Unknown]
  - Dysphonia [Unknown]
  - Sneezing [Unknown]
  - Cough [Unknown]
  - Productive cough [Recovered/Resolved]
  - Wound [Unknown]
  - Discomfort [Unknown]
  - Gait disturbance [Unknown]
  - Psoriasis [Recovered/Resolved]
  - Inflammation [Unknown]
  - COVID-19 [Unknown]
  - Pharyngitis [Unknown]
  - Rhinitis [Recovered/Resolved]
  - Nasopharyngitis [Unknown]
  - Off label use [Unknown]
  - Incorrect dose administered [Unknown]
  - Stress [Unknown]
  - Drug ineffective [Unknown]
  - Bronchitis [Unknown]
  - Hypertension [Recovered/Resolved]
  - Psoriasis [Unknown]
  - Skin fissures [Unknown]
  - Malaise [Unknown]
  - Skin disorder [Unknown]
  - Sinusitis [Recovered/Resolved]

NARRATIVE: CASE EVENT DATE: 20230104
